FAERS Safety Report 24068205 (Version 2)
Quarter: 2024Q3

REPORT INFORMATION
  Report Type: Spontaneous
  Country: US (occurrence: US)
  Receive Date: 20240710
  Receipt Date: 20240725
  Transmission Date: 20241017
  Serious: No
  Sender: SANOFI AVENTIS
  Company Number: US-SANOFI-02117418

PATIENT
  Age: 70 Year
  Sex: Male

DRUGS (2)
  1. DUPIXENT [Suspect]
     Active Substance: DUPILUMAB
     Indication: Eczema
     Dosage: 300 MG, QOW
     Route: 058
     Dates: end: 2024
  2. DUPIXENT [Suspect]
     Active Substance: DUPILUMAB
     Indication: Dermatitis atopic

REACTIONS (9)
  - Gingival swelling [Unknown]
  - Gingival pain [Unknown]
  - Oral pain [Unknown]
  - Fungal infection [Unknown]
  - Dyspnoea [Recovering/Resolving]
  - Mouth swelling [Unknown]
  - Toothache [Unknown]
  - Rash [Unknown]
  - Drug ineffective [Unknown]
